FAERS Safety Report 8986829 (Version 2)
Quarter: 2013Q1

REPORT INFORMATION
  Report Type: Spontaneous
  Country: US (occurrence: US)
  Receive Date: 20121227
  Receipt Date: 20130307
  Transmission Date: 20140127
  Serious: Yes (Hospitalization, Other)
  Sender: FDA-Public Use
  Company Number: US-BIOGENIDEC-2006BI008682

PATIENT
  Age: 36 Year
  Sex: Female
  Weight: 38 kg

DRUGS (1)
  1. AVONEX [Suspect]
     Indication: MULTIPLE SCLEROSIS
     Route: 030
     Dates: start: 199610, end: 20070817

REACTIONS (22)
  - Renal impairment [Unknown]
  - Hepatic function abnormal [Unknown]
  - Liver disorder [Recovered/Resolved]
  - Multiple sclerosis relapse [Recovered/Resolved]
  - Convulsion [Recovered/Resolved]
  - Hepatomegaly [Unknown]
  - Kidney enlargement [Unknown]
  - Migraine [Unknown]
  - Aphagia [Unknown]
  - Amenorrhoea [Unknown]
  - Stress [Unknown]
  - Coordination abnormal [Unknown]
  - Abdominal distension [Unknown]
  - Gait disturbance [Not Recovered/Not Resolved]
  - Mental impairment [Not Recovered/Not Resolved]
  - Eyelid function disorder [Not Recovered/Not Resolved]
  - Panic attack [Not Recovered/Not Resolved]
  - Pain in extremity [Not Recovered/Not Resolved]
  - Asthenia [Unknown]
  - Syncope [Unknown]
  - Decreased appetite [Not Recovered/Not Resolved]
  - Depressed mood [Unknown]
